FAERS Safety Report 18960023 (Version 17)
Quarter: 2024Q4

REPORT INFORMATION
  Report Type: Report from Study
  Country: CA (occurrence: CA)
  Receive Date: 20210302
  Receipt Date: 20241029
  Transmission Date: 20250115
  Serious: Yes (Other)
  Sender: MYLAN
  Company Number: CA-MYLANLABS-2021M1011804

PATIENT
  Age: 81 Year
  Sex: Female
  Weight: 96 kg

DRUGS (98)
  1. EPIPEN [Suspect]
     Active Substance: EPINEPHRINE
     Indication: Drug hypersensitivity
     Dosage: 0.3 MILLIGRAM
     Route: 030
  2. XALATAN [Suspect]
     Active Substance: LATANOPROST
     Indication: Glaucoma
     Dosage: 1 GTT DROPS, QD (1 EVERY 1 DAYS)
     Route: 047
  3. XALATAN [Suspect]
     Active Substance: LATANOPROST
     Dosage: 1 GRAM, QD  (1 EVERY 1 DAYS)
     Route: 047
  4. XALATAN [Suspect]
     Active Substance: LATANOPROST
     Dosage: 1 DOSAGE FORM,QD
     Route: 065
  5. XALATAN [Suspect]
     Active Substance: LATANOPROST
     Dosage: 1 DOSAGE FORM, QD (1 EVERY 1 DAYS)
     Route: 047
  6. XALATAN [Suspect]
     Active Substance: LATANOPROST
     Dosage: 1 GRAM, QD  (1 EVERY 1 DAYS)
     Route: 065
  7. EPINEPHRINE [Suspect]
     Active Substance: EPINEPHRINE
     Indication: Drug hypersensitivity
     Dosage: UNK
     Route: 065
     Dates: start: 20181203, end: 20181203
  8. EPINEPHRINE [Suspect]
     Active Substance: EPINEPHRINE
     Dosage: UNK
     Route: 065
  9. EPINEPHRINE [Suspect]
     Active Substance: EPINEPHRINE
     Indication: Drug hypersensitivity
     Dosage: UNK
     Route: 065
  10. EPINEPHRINE [Suspect]
     Active Substance: EPINEPHRINE
     Indication: Drug hypersensitivity
     Dosage: UNK
     Route: 065
  11. BISOPROLOL [Suspect]
     Active Substance: BISOPROLOL\BISOPROLOL FUMARATE
     Indication: Hypertension
     Dosage: 5 MILLIGRAM, QD (1 EVERY 1 DAYS)
     Route: 065
  12. BISOPROLOL [Suspect]
     Active Substance: BISOPROLOL\BISOPROLOL FUMARATE
     Dosage: 1 DOSAGE FORM, QD (1 EVERY 1 DAYS)
     Route: 065
  13. BISOPROLOL [Suspect]
     Active Substance: BISOPROLOL\BISOPROLOL FUMARATE
     Dosage: UNK, QD
     Route: 065
  14. ELIQUIS [Suspect]
     Active Substance: APIXABAN
     Indication: Anticoagulant therapy
     Dosage: 5 MILLIGRAM, BID
     Route: 065
  15. ELIQUIS [Suspect]
     Active Substance: APIXABAN
     Indication: Cerebrovascular accident prophylaxis
     Dosage: 2 DOSAGE FORM, QD (1 EVERY 1 DAYS)
     Route: 065
  16. ELIQUIS [Suspect]
     Active Substance: APIXABAN
     Dosage: 5 MILLIGRAM
     Route: 065
  17. ADVAIR HFA [Suspect]
     Active Substance: FLUTICASONE PROPIONATE\SALMETEROL XINAFOATE
     Indication: Product used for unknown indication
     Dosage: UNK
     Route: 065
  18. MOMETASONE FUROATE [Suspect]
     Active Substance: MOMETASONE FUROATE
     Indication: Nasal polyps
     Dosage: 50 MILLIGRAM
     Route: 065
  19. MOMETASONE FUROATE [Suspect]
     Active Substance: MOMETASONE FUROATE
     Indication: Asthma
     Dosage: 15 MILLIGRAM
     Route: 065
  20. MOMETASONE FUROATE [Suspect]
     Active Substance: MOMETASONE FUROATE
     Indication: Asthma
     Dosage: 50 MICROGRAM
     Route: 065
  21. MOMETASONE FUROATE [Suspect]
     Active Substance: MOMETASONE FUROATE
     Dosage: 2 DOSAGE FORM, QD (1 EVERY 1 DAYS)
     Route: 065
  22. MOMETASONE FUROATE [Suspect]
     Active Substance: MOMETASONE FUROATE
     Dosage: 100 MILLIGRAM
     Route: 065
  23. PREDNISONE [Suspect]
     Active Substance: PREDNISONE
     Indication: Asthma
     Dosage: UNK
     Route: 065
  24. ALBUTEROL [Suspect]
     Active Substance: ALBUTEROL
     Indication: Asthma
     Dosage: 100 MICROGRAM
     Route: 065
  25. ALBUTEROL [Suspect]
     Active Substance: ALBUTEROL
     Dosage: 100 MILLIGRAM
     Route: 065
  26. ALBUTEROL [Suspect]
     Active Substance: ALBUTEROL
     Dosage: UNK
     Route: 065
  27. ZENHALE [Suspect]
     Active Substance: FORMOTEROL FUMARATE\MOMETASONE FUROATE
     Indication: Asthma
     Dosage: UNK, BID (EVERY 12 HOURS)
     Route: 065
  28. ZENHALE [Suspect]
     Active Substance: FORMOTEROL FUMARATE\MOMETASONE FUROATE
     Dosage: 2 DOSAGE FORM, BID (EVERY 12 HOURS)
     Route: 065
  29. ZENHALE [Suspect]
     Active Substance: FORMOTEROL FUMARATE\MOMETASONE FUROATE
     Dosage: UNK
     Route: 065
  30. ZENHALE [Suspect]
     Active Substance: FORMOTEROL FUMARATE\MOMETASONE FUROATE
     Dosage: 1 DOSAGE FORM, QD (1 EVERY 1 DAYS)
     Route: 065
  31. ZENHALE [Suspect]
     Active Substance: FORMOTEROL FUMARATE\MOMETASONE FUROATE
     Dosage: 2 DOSAGE FORM, QD (1 EVERY 1 DAYS)
     Route: 065
  32. ZENHALE [Suspect]
     Active Substance: FORMOTEROL FUMARATE\MOMETASONE FUROATE
     Dosage: 2 DOSAGE FORM
     Route: 065
  33. ZENHALE [Suspect]
     Active Substance: FORMOTEROL FUMARATE\MOMETASONE FUROATE
     Dosage: UNK, BID
     Route: 065
  34. SPIRIVA [Suspect]
     Active Substance: TIOTROPIUM BROMIDE MONOHYDRATE
     Indication: Hypersensitivity
     Dosage: 2 DOSAGE FORM, QD
     Route: 065
  35. SPIRIVA [Suspect]
     Active Substance: TIOTROPIUM BROMIDE MONOHYDRATE
     Indication: Asthma
     Dosage: 18 MICROGRAM, QD
     Route: 065
  36. SPIRIVA [Suspect]
     Active Substance: TIOTROPIUM BROMIDE MONOHYDRATE
     Dosage: 1 DOSAGE FORM, QD
     Route: 065
  37. SPIRIVA [Suspect]
     Active Substance: TIOTROPIUM BROMIDE MONOHYDRATE
     Dosage: 180 MICROGRAM, QD (1 EVERY 1 DAYS)
     Route: 065
  38. SPIRIVA [Suspect]
     Active Substance: TIOTROPIUM BROMIDE MONOHYDRATE
     Dosage: UNK
     Route: 065
  39. ALBUTEROL SULFATE [Suspect]
     Active Substance: ALBUTEROL SULFATE
     Indication: Asthma
     Dosage: UNK
     Route: 065
  40. ALBUTEROL SULFATE [Suspect]
     Active Substance: ALBUTEROL SULFATE
     Dosage: 100 MICROGRAM
     Route: 065
  41. PANTOPRAZOLE MAGNESIUM [Suspect]
     Active Substance: PANTOPRAZOLE MAGNESIUM
     Indication: Dyspepsia
     Dosage: UNK
     Route: 065
  42. BISOPROLOL FUMARATE\HYDROCHLOROTHIAZIDE [Suspect]
     Active Substance: BISOPROLOL FUMARATE\HYDROCHLOROTHIAZIDE
     Indication: Hypertension
     Dosage: 5 MILLIGRAM, QD (1 EVERY 1 DAYS)
     Route: 065
  43. BISOPROLOL FUMARATE\HYDROCHLOROTHIAZIDE [Suspect]
     Active Substance: BISOPROLOL FUMARATE\HYDROCHLOROTHIAZIDE
     Dosage: 1 DOSAGE FORM, QD (1 EVERY 1 DAYS)
     Route: 065
  44. FORMOTEROL FUMARATE [Suspect]
     Active Substance: FORMOTEROL FUMARATE
     Indication: Asthma
     Dosage: 2 DOSAGE FORM, QD (1 EVERY 1 DAYS)
     Route: 065
  45. FORMOTEROL FUMARATE [Suspect]
     Active Substance: FORMOTEROL FUMARATE
     Dosage: 2 DOSAGE FORM
     Route: 065
  46. FORMOTEROL FUMARATE [Suspect]
     Active Substance: FORMOTEROL FUMARATE
     Dosage: 2 DOSAGE FORM, BID (EVERY 12 HOUR)
     Route: 065
  47. FORMOTEROL FUMARATE [Suspect]
     Active Substance: FORMOTEROL FUMARATE
     Dosage: UNK, BID (EVERY 12 HOURS)
     Route: 065
  48. FORMOTEROL FUMARATE [Suspect]
     Active Substance: FORMOTEROL FUMARATE
     Dosage: UNK
     Route: 065
  49. PANTOPRAZOLE MAGNESIUM [Suspect]
     Active Substance: PANTOPRAZOLE MAGNESIUM
     Indication: Dyspepsia
     Dosage: UNK
     Route: 065
  50. TIOTROPIUM BROMIDE MONOHYDRATE [Suspect]
     Active Substance: TIOTROPIUM BROMIDE MONOHYDRATE
     Indication: Hypersensitivity
     Dosage: 2 DOSAGE FORM, QD (1 EVERY 1 DAYS)
     Route: 065
  51. TIOTROPIUM BROMIDE MONOHYDRATE [Suspect]
     Active Substance: TIOTROPIUM BROMIDE MONOHYDRATE
     Indication: Asthma
     Dosage: 180 MICROGRAM, QD (1 EVERY 1 DAYS)
     Route: 065
  52. TIOTROPIUM BROMIDE MONOHYDRATE [Suspect]
     Active Substance: TIOTROPIUM BROMIDE MONOHYDRATE
     Dosage: 1 DOSAGE FORM, QD (1 EVERY 1 DAYS)
     Route: 065
  53. TIOTROPIUM BROMIDE MONOHYDRATE [Suspect]
     Active Substance: TIOTROPIUM BROMIDE MONOHYDRATE
     Dosage: 18 MICROGRAM,QD(1 EVERY 1 DAYS)
     Route: 065
  54. TIOTROPIUM BROMIDE MONOHYDRATE [Suspect]
     Active Substance: TIOTROPIUM BROMIDE MONOHYDRATE
     Dosage: 18 MICROGRAM
     Route: 065
  55. TIOTROPIUM BROMIDE MONOHYDRATE [Suspect]
     Active Substance: TIOTROPIUM BROMIDE MONOHYDRATE
     Dosage: UNK
     Route: 065
  56. MEPOLIZUMAB [Suspect]
     Active Substance: MEPOLIZUMAB
     Indication: Asthma
     Dosage: 100 MILLIGRAM
     Route: 058
  57. MEPOLIZUMAB [Suspect]
     Active Substance: MEPOLIZUMAB
     Dosage: 100 MILLIGRAM (1 EVERY 4 WEEKS)
     Route: 058
  58. NUCALA [Suspect]
     Active Substance: MEPOLIZUMAB
     Indication: Asthma
     Dosage: 100 MILLIGRAM
     Route: 065
  59. NUCALA [Suspect]
     Active Substance: MEPOLIZUMAB
     Dosage: 100 MILLIGRAM (1 EVERY 1 MONTHS)
     Route: 065
  60. FORMOTEROL FUMARATE\MOMETASONE FUROATE [Suspect]
     Active Substance: FORMOTEROL FUMARATE\MOMETASONE FUROATE
     Indication: Asthma
     Dosage: UNK
     Route: 065
  61. BENRALIZUMAB [Suspect]
     Active Substance: BENRALIZUMAB
     Indication: Asthma
     Dosage: UNK
     Route: 065
  62. BENRALIZUMAB [Suspect]
     Active Substance: BENRALIZUMAB
     Dosage: UNK
     Route: 058
  63. BENRALIZUMAB [Suspect]
     Active Substance: BENRALIZUMAB
     Dosage: UNK
     Route: 058
  64. BISOPROLOL FUMARATE [Suspect]
     Active Substance: BISOPROLOL FUMARATE
     Indication: Nasal polyps
     Dosage: 2 DOSAGE FORM,QD (1 EVERY 1 DAYS)
     Route: 065
  65. BISOPROLOL FUMARATE [Suspect]
     Active Substance: BISOPROLOL FUMARATE
     Indication: Hypertension
     Dosage: 1 DOSAGE FORM, QD (1 EVERY 1 DAYS)
     Route: 065
  66. BISOPROLOL FUMARATE [Suspect]
     Active Substance: BISOPROLOL FUMARATE
     Indication: Asthma
     Dosage: 50 MICROGRAM
     Route: 065
  67. BISOPROLOL FUMARATE [Suspect]
     Active Substance: BISOPROLOL FUMARATE
     Dosage: 5 MILLIGRAM, QD (1 EVERY 1 DAYS)
     Route: 065
  68. APIXABAN [Suspect]
     Active Substance: APIXABAN
     Indication: Cerebrovascular accident prophylaxis
     Dosage: 5 MILLIGRAM, BID(ONE EVERY 12 HOURS)
     Route: 065
  69. APIXABAN [Suspect]
     Active Substance: APIXABAN
     Dosage: 2 DOSAGE FORM, QD (1 EVERY 1 DAYS)
     Route: 065
  70. APIXABAN [Suspect]
     Active Substance: APIXABAN
     Indication: Cerebrovascular accident prophylaxis
     Route: 065
  71. FLUTICASONE PROPIONATE\SALMETEROL XINAFOATE [Suspect]
     Active Substance: FLUTICASONE PROPIONATE\SALMETEROL XINAFOATE
     Indication: Product used for unknown indication
     Dosage: 2 DOSAGE FORM, QD (1 EVERY 1 DAYS)
     Route: 065
  72. FLUTICASONE PROPIONATE\SALMETEROL XINAFOATE [Suspect]
     Active Substance: FLUTICASONE PROPIONATE\SALMETEROL XINAFOATE
     Dosage: 1 DOSAGE FORM, BID (EVERY 12 HOUR)
     Route: 065
  73. FLUTICASONE PROPIONATE\SALMETEROL XINAFOATE [Suspect]
     Active Substance: FLUTICASONE PROPIONATE\SALMETEROL XINAFOATE
     Dosage: UNK
     Route: 065
  74. FORMOTEROL [Suspect]
     Active Substance: FORMOTEROL
     Indication: Asthma
     Dosage: UNK
     Route: 065
  75. FORMOTEROL [Suspect]
     Active Substance: FORMOTEROL
     Dosage: 2 DOSAGE FORM, BID (EVERY 12 HOUR)
     Route: 065
  76. FORMOTEROL [Suspect]
     Active Substance: FORMOTEROL
     Dosage: 2 DOSAGE FORM, QD (1 EVERY 1 DAYS)
     Route: 065
  77. BENRALIZUMAB [Suspect]
     Active Substance: BENRALIZUMAB
     Indication: Asthma
     Dosage: UNK
     Route: 058
  78. ELIQUIS [Suspect]
     Active Substance: APIXABAN
     Indication: Anticoagulant therapy
     Dosage: 5 MILLIGRAM, BID (2 EVERY 1 DAY)
     Route: 065
  79. ELIQUIS [Suspect]
     Active Substance: APIXABAN
     Indication: Cerebrovascular accident prophylaxis
  80. EPINEPHRINE BITARTRATE [Suspect]
     Active Substance: EPINEPHRINE BITARTRATE
     Indication: Drug hypersensitivity
     Dosage: UNK, QD (1 EVERY1 DAYS)
     Route: 065
  81. EPINEPHRINE HYDROCHLORIDE [Suspect]
     Active Substance: EPINEPHRINE HYDROCHLORIDE
     Indication: Drug hypersensitivity
     Dosage: UNK
     Route: 065
  82. PANTOPRAZOLE MAGNESIUM [Suspect]
     Active Substance: PANTOPRAZOLE MAGNESIUM
     Indication: Dyspepsia
     Dosage: UNK
     Route: 065
  83. PREDNISONE [Suspect]
     Active Substance: PREDNISONE
     Indication: Asthma
     Dosage: UNK
     Route: 065
  84. SPIRIVA [Suspect]
     Active Substance: TIOTROPIUM BROMIDE MONOHYDRATE
     Indication: Hypersensitivity
     Dosage: 2 DOSAGE FORM, QD (1 EVERY 1 DAYS)
     Route: 065
  85. SPIRIVA [Suspect]
     Active Substance: TIOTROPIUM BROMIDE MONOHYDRATE
     Indication: Asthma
  86. PANTOPRAZOLE MAGNESIUM [Suspect]
     Active Substance: PANTOPRAZOLE MAGNESIUM
     Indication: Dyspepsia
     Dosage: UNK
     Route: 065
  87. TIOTROPIUM BROMIDE MONOHYDRATE [Suspect]
     Active Substance: TIOTROPIUM BROMIDE MONOHYDRATE
     Indication: Hypersensitivity
     Dosage: 180 MICROGRAM, QD (1 EVERY 1 DAYS)
     Route: 065
  88. TIOTROPIUM BROMIDE MONOHYDRATE [Suspect]
     Active Substance: TIOTROPIUM BROMIDE MONOHYDRATE
     Indication: Asthma
  89. XALATAN [Suspect]
     Active Substance: LATANOPROST
     Indication: Glaucoma
     Dosage: 1 GTT DROPS, QD (1 EVERY 1 DAYS)
     Route: 047
  90. ZENHALE [Suspect]
     Active Substance: FORMOTEROL FUMARATE\MOMETASONE FUROATE
     Indication: Asthma
     Dosage: UNK, BID (AEROSOL, METERED DOSE, 2 EVERY 1 DAYS)
     Route: 065
  91. TIOTROPIUM BROMIDE [Concomitant]
     Active Substance: TIOTROPIUM BROMIDE
     Indication: Hypersensitivity
     Dosage: 2 DOSAGE FORM, QD
     Route: 065
  92. FLUTICASONE FUROATE\SALMETEROL XINAFOATE [Concomitant]
     Active Substance: FLUTICASONE FUROATE\SALMETEROL XINAFOATE
     Indication: Asthma
     Dosage: UNK
     Route: 065
  93. FLUTICASONE FUROATE\SALMETEROL XINAFOATE [Concomitant]
     Active Substance: FLUTICASONE FUROATE\SALMETEROL XINAFOATE
     Dosage: 2 DOSAGE FORM, QD
     Route: 065
  94. FLUTICASONE FUROATE\SALMETEROL XINAFOATE [Concomitant]
     Active Substance: FLUTICASONE FUROATE\SALMETEROL XINAFOATE
     Dosage: 1 DOSAGE FORM, BID
     Route: 065
  95. BENRALIZUMAB [Concomitant]
     Active Substance: BENRALIZUMAB
     Indication: Asthma
     Dosage: UNK
     Route: 058
     Dates: start: 20181203, end: 20190325
  96. BENRALIZUMAB [Concomitant]
     Active Substance: BENRALIZUMAB
     Dosage: UNK
     Route: 065
  97. PANTOPRAZOLE [Concomitant]
     Active Substance: PANTOPRAZOLE
     Indication: Dyspepsia
     Dosage: UNK
     Route: 065
  98. FLUTICASONE [Concomitant]
     Active Substance: FLUTICASONE
     Indication: Product used for unknown indication
     Dosage: UNK
     Route: 065

REACTIONS (22)
  - Asthma [Not Recovered/Not Resolved]
  - Atrial flutter [Not Recovered/Not Resolved]
  - Full blood count abnormal [Not Recovered/Not Resolved]
  - Cough [Not Recovered/Not Resolved]
  - Dyspnoea exertional [Not Recovered/Not Resolved]
  - Obstructive airways disorder [Not Recovered/Not Resolved]
  - Respiratory tract congestion [Not Recovered/Not Resolved]
  - Respiratory tract infection [Not Recovered/Not Resolved]
  - Sinus disorder [Not Recovered/Not Resolved]
  - Urticaria [Not Recovered/Not Resolved]
  - Wheezing [Not Recovered/Not Resolved]
  - Rash pruritic [Not Recovered/Not Resolved]
  - Loss of personal independence in daily activities [Not Recovered/Not Resolved]
  - Hypersensitivity [Not Recovered/Not Resolved]
  - Headache [Not Recovered/Not Resolved]
  - Hypertension [Not Recovered/Not Resolved]
  - Dyspnoea [Not Recovered/Not Resolved]
  - Malaise [Not Recovered/Not Resolved]
  - Rash [Not Recovered/Not Resolved]
  - Pruritus [Not Recovered/Not Resolved]
  - Therapeutic product effect incomplete [Not Recovered/Not Resolved]
  - Off label use [Not Recovered/Not Resolved]
